FAERS Safety Report 5217014-4 (Version None)
Quarter: 2007Q1

REPORT INFORMATION
  Report Type: 
  Country: None (occurrence: None)
  Receive Date: 20070124
  Receipt Date: 20070116
  Transmission Date: 20070707
  Serious: Yes (Other)
  Sender: FDA-Public Use
  Company Number: US-BAYER-200710171BCC

PATIENT
  Age: 52 Year
  Sex: Female
  Weight: 73 kg

DRUGS (6)
  1. ORIGINAL ALKA-SELTZER TABLETS [Suspect]
     Indication: LAXATIVE SUPPORTIVE CARE
     Dosage: TOTAL DAILY DOSE: 325 MG  UNIT DOSE: 325 MG
     Route: 048
     Dates: start: 20070114
  2. CARDIZEM [Concomitant]
  3. HYDROCHLOROTHIAZIDE [Concomitant]
  4. MOTRIN [Concomitant]
  5. TYLENOL [Concomitant]
  6. LEVAQUIN [Concomitant]

REACTIONS (8)
  - DIZZINESS [None]
  - DREAMY STATE [None]
  - DYSPNOEA [None]
  - HYPERTENSION [None]
  - NAUSEA [None]
  - THINKING ABNORMAL [None]
  - THROAT TIGHTNESS [None]
  - VISUAL ACUITY REDUCED [None]
